FAERS Safety Report 8056085-7 (Version None)
Quarter: 2012Q1

REPORT INFORMATION
  Report Type: 
  Country: None (occurrence: None)
  Receive Date: 20120119
  Receipt Date: 20120111
  Transmission Date: 20120608
  Serious: Yes (Other)
  Sender: FDA-Public Use
  Company Number: US-JNJFOC-20120104396

PATIENT

DRUGS (2)
  1. XARELTO [Suspect]
     Indication: PROPHYLAXIS
     Route: 048
  2. XARELTO [Suspect]
     Indication: THROMBOSIS PROPHYLAXIS
     Route: 048

REACTIONS (2)
  - STAPHYLOCOCCAL INFECTION [None]
  - POST PROCEDURAL HAEMORRHAGE [None]
